FAERS Safety Report 4984740-1 (Version None)
Quarter: 2006Q2

REPORT INFORMATION
  Report Type: 
  Country: None (occurrence: None)
  Receive Date: 20060427
  Receipt Date: 20050509
  Transmission Date: 20061013
  Serious: Yes (Death)
  Sender: FDA-Public Use
  Company Number: NO-MERCK-0505NOR00009

PATIENT
  Age: 65 Year
  Sex: Male

DRUGS (2)
  1. VIOXX [Suspect]
     Indication: ARTHRALGIA
     Route: 048
     Dates: start: 20040603, end: 20041001
  2. CYANOCOBALAMIN [Concomitant]
     Route: 065

REACTIONS (2)
  - MYOCARDIAL INFARCTION [None]
  - SUDDEN DEATH [None]
